FAERS Safety Report 5396235-4 (Version None)
Quarter: 2007Q3

REPORT INFORMATION
  Report Type: 
  Country: None (occurrence: None)
  Receive Date: 20070718
  Receipt Date: 20070418
  Transmission Date: 20080115
  Serious: Yes (Hospitalization, Other)
  Sender: FDA-Public Use
  Company Number: 2006141174

PATIENT
  Age: 67 Year
  Sex: Female
  Weight: 54.4 kg

DRUGS (4)
  1. CELECOXIB [Suspect]
     Indication: ARTHRITIS
     Dosage: (200 MG, ONCE OR TWICE)
     Dates: start: 19991101
  2. CELECOXIB [Suspect]
     Indication: PAIN
     Dosage: (200 MG, ONCE OR TWICE)
     Dates: start: 19991101
  3. BEXTRA [Suspect]
     Indication: ARTHRITIS
     Dosage: 20 MG (20 MG, 1 IN 1 D)
     Dates: start: 20050101
  4. BEXTRA [Suspect]
     Indication: PAIN
     Dosage: 20 MG (20 MG, 1 IN 1 D)
     Dates: start: 20050101

REACTIONS (3)
  - CHEST PAIN [None]
  - MUSCULAR WEAKNESS [None]
  - MYOCARDIAL INFARCTION [None]
